FAERS Safety Report 18789518 (Version 2)
Quarter: 2021Q3

REPORT INFORMATION
  Report Type: Spontaneous
  Country: US (occurrence: US)
  Receive Date: 20210125
  Receipt Date: 20210715
  Transmission Date: 20211014
  Serious: Yes (Hospitalization, Other)
  Sender: FDA-Public Use
  Company Number: US-DRREDDYS-USA/USA/21/0131146

PATIENT
  Age: 28 Year
  Sex: Female

DRUGS (10)
  1. ONDANSETRON [Suspect]
     Active Substance: ONDANSETRON
     Dosage: IT IS UNCLEAR HOW FREQUENTLY SHE SELF?ADMINISTERED ODSN
  2. OLANZAPINE TABLETS 2.5 MG, 5 MG, 7.5 MG, 10 MG [Concomitant]
     Active Substance: OLANZAPINE
     Indication: PSYCHOTIC SYMPTOM
  3. ONDANSETRON [Suspect]
     Active Substance: ONDANSETRON
     Dosage: REQUIRING ONLY TWO DOSES OF 4 MG ODSN FOR THE REMAINING SIX DAYS OF HER HOSPITALIZATION; THE PATIENT
  4. OLANZAPINE TABLETS 2.5 MG, 5 MG, 7.5 MG, 10 MG [Concomitant]
     Active Substance: OLANZAPINE
     Indication: MAJOR DEPRESSION
     Dosage: TITRATED UP
  5. ONDANSETRON [Suspect]
     Active Substance: ONDANSETRON
     Indication: HYPEREMESIS GRAVIDARUM
     Dosage: AS?NEEDED BASIS (PRN). THE FIRST ADMINISTRATION OF ODSN WAS ONE DAY AFTER ADMISSION WITH THE MAJORIT
  6. DOXYLAMINE SUCCINATE. [Concomitant]
     Active Substance: DOXYLAMINE SUCCINATE
     Indication: HYPEREMESIS GRAVIDARUM
  7. SERTRALINE [Concomitant]
     Active Substance: SERTRALINE HYDROCHLORIDE
     Indication: PSYCHOTIC SYMPTOM
  8. SERTRALINE [Concomitant]
     Active Substance: SERTRALINE HYDROCHLORIDE
     Indication: MAJOR DEPRESSION
     Dosage: TITRATED UP
  9. FAMOTIDINE 20 MG [Concomitant]
     Active Substance: FAMOTIDINE
     Indication: HYPEREMESIS GRAVIDARUM
  10. PYRIDOXINE HYDROCHLORIDE. [Concomitant]
     Active Substance: PYRIDOXINE HYDROCHLORIDE
     Indication: HYPEREMESIS GRAVIDARUM

REACTIONS (3)
  - Drug-induced liver injury [Recovering/Resolving]
  - Hypertransaminasaemia [Recovering/Resolving]
  - Maternal exposure during pregnancy [Recovered/Resolved]
